FAERS Safety Report 6111675-3 (Version None)
Quarter: 2009Q1

REPORT INFORMATION
  Report Type: 
  Country: None (occurrence: None)
  Receive Date: 20090309
  Receipt Date: 20090223
  Transmission Date: 20090719
  Serious: Yes (Other)
  Sender: FDA-Public Use
  Company Number: 2009SP002961

PATIENT
  Age: 39 Year
  Sex: Female

DRUGS (3)
  1. LORATADINE [Suspect]
     Indication: SINUSITIS
     Dosage: PO
     Route: 048
     Dates: start: 20090101, end: 20090101
  2. CLARITHROMYCIN [Suspect]
     Indication: SINUSITIS
     Dosage: PO
     Route: 048
  3. ACETAMINOPHEN [Suspect]
     Indication: SINUSITIS
     Dosage: PO
     Route: 048

REACTIONS (2)
  - ABORTION SPONTANEOUS [None]
  - DRUG EXPOSURE DURING PREGNANCY [None]
